FAERS Safety Report 7604215-0 (Version None)
Quarter: 2011Q3

REPORT INFORMATION
  Report Type: 
  Country: None (occurrence: None)
  Receive Date: 20110712
  Receipt Date: 20110707
  Transmission Date: 20111222
  Serious: Yes (Disabling)
  Sender: FDA-Public Use
  Company Number: DE-MERCK-1106DEU00091

PATIENT
  Age: 89 Year
  Sex: Female
  Weight: 70 kg

DRUGS (1)
  1. COSOPT [Suspect]
     Route: 047
     Dates: start: 20100901

REACTIONS (2)
  - DYSGEUSIA [None]
  - DECREASED APPETITE [None]
